FAERS Safety Report 6131491-6 (Version None)
Quarter: 2009Q1

REPORT INFORMATION
  Report Type: 
  Country: None (occurrence: None)
  Receive Date: 20090325
  Receipt Date: 20080825
  Transmission Date: 20090719
  Serious: Yes (Other)
  Sender: FDA-Public Use
  Company Number: US-BRISTOL-MYERS SQUIBB COMPANY-14315097

PATIENT
  Sex: Female

DRUGS (2)
  1. ERBITUX [Suspect]
     Dates: start: 20080825
  2. XELODA [Concomitant]

REACTIONS (5)
  - BLOOD PRESSURE DECREASED [None]
  - DIZZINESS [None]
  - EYE ROLLING [None]
  - LOSS OF CONSCIOUSNESS [None]
  - URINARY INCONTINENCE [None]
